FAERS Safety Report 9328301 (Version 1)
Quarter: 2013Q2

REPORT INFORMATION
  Report Type: Spontaneous
  Country: US (occurrence: US)
  Receive Date: 20130604
  Receipt Date: 20130604
  Transmission Date: 20140414
  Serious: No
  Sender: FDA-Public Use
  Company Number: US-SANOFI-AVENTIS-2012SA047270

PATIENT
  Age: 65 Year
  Sex: Male

DRUGS (1)
  1. LANTUS [Suspect]
     Indication: PRODUCT USED FOR UNKNOWN INDICATION
     Dosage: PRODUCT START DATE MENTIONED AS 3 YEARS AGO DOSE:70 UNIT(S)
     Route: 058
     Dates: start: 2009

REACTIONS (2)
  - Dizziness [Unknown]
  - Underdose [Unknown]
